FAERS Safety Report 6728803-9 (Version None)
Quarter: 2010Q2

REPORT INFORMATION
  Report Type: 
  Country: None (occurrence: None)
  Receive Date: 20100517
  Receipt Date: 20100216
  Transmission Date: 20101027
  Serious: No
  Sender: FDA-Public Use
  Company Number: US-ABBOTT-10P-163-0625850-00

PATIENT
  Sex: Male
  Weight: 72.64 kg

DRUGS (4)
  1. SIMCOR [Suspect]
     Indication: DEEP VEIN THROMBOSIS
     Dosage: 500/20MG DAILY
     Route: 048
     Dates: start: 20100201
  2. CILASTAZOL [Concomitant]
     Indication: THROMBOSIS
  3. ASPIRIN [Concomitant]
     Indication: DRUG USE FOR UNKNOWN INDICATION
  4. ZANTAC [Concomitant]
     Indication: DRUG USE FOR UNKNOWN INDICATION

REACTIONS (2)
  - FLUSHING [None]
  - PRURITUS [None]
